FAERS Safety Report 9938407 (Version 1)
Quarter: 2014Q1

REPORT INFORMATION
  Report Type: Report from Study
  Country: US (occurrence: US)
  Receive Date: 20140303
  Receipt Date: 20140303
  Transmission Date: 20141002
  Serious: No
  Sender: FDA-Public Use
  Company Number: US-ABBVIE-13P-163-1031924-00

PATIENT
  Age: 46 Year
  Sex: Female

DRUGS (5)
  1. HUMIRA [Suspect]
     Indication: PSORIASIS
     Dates: start: 201204
  2. TOPAMAX [Concomitant]
     Indication: HEADACHE
  3. MEDICATION [Concomitant]
     Indication: CORONARY ARTERY DISEASE
     Dosage: 10MG DAILY
  4. IBUPROFEN [Concomitant]
     Indication: HEADACHE
  5. LEXAPRO [Concomitant]
     Indication: HOT FLUSH
     Dosage: 20MG DAILY

REACTIONS (2)
  - Device malfunction [Recovered/Resolved]
  - Injection site pain [Recovered/Resolved]
